FAERS Safety Report 5491116-X (Version None)
Quarter: 2007Q4

REPORT INFORMATION
  Report Type: 
  Country: None (occurrence: None)
  Receive Date: 20071019
  Receipt Date: 20071008
  Transmission Date: 20080405
  Serious: Yes (Other)
  Sender: FDA-Public Use
  Company Number: US-BRISTOL-MYERS SQUIBB COMPANY-13939376

PATIENT
  Age: 50 Year
  Sex: Male

DRUGS (5)
  1. CARBOPLATIN [Suspect]
     Indication: T-CELL LYMPHOMA
  2. IFOSFAMIDE [Suspect]
     Indication: T-CELL LYMPHOMA
  3. ETOPOSIDE [Suspect]
     Indication: T-CELL LYMPHOMA
  4. RITUXIMAB [Suspect]
     Indication: T-CELL LYMPHOMA
  5. RADIOTHERAPY [Suspect]
     Indication: T-CELL LYMPHOMA

REACTIONS (1)
  - MYELODYSPLASTIC SYNDROME [None]
